FAERS Safety Report 4882064-4 (Version None)
Quarter: 2006Q1

REPORT INFORMATION
  Report Type: 
  Country: None (occurrence: None)
  Receive Date: 20060117
  Receipt Date: 20050105
  Transmission Date: 20060701
  Serious: Yes (Other)
  Sender: FDA-Public Use
  Company Number: US-MERCK-0501USA00608

PATIENT
  Age: 73 Year
  Sex: Male
  Weight: 49 kg

DRUGS (3)
  1. VIOXX [Suspect]
     Indication: PAIN IN EXTREMITY
     Route: 048
     Dates: start: 20000701, end: 20010407
  2. VIOXX [Suspect]
     Route: 048
     Dates: start: 20000701, end: 20010407
  3. AMBIEN [Concomitant]
     Route: 065

REACTIONS (23)
  - ANXIETY [None]
  - CACHEXIA [None]
  - CARPAL TUNNEL SYNDROME [None]
  - CEREBROVASCULAR ACCIDENT [None]
  - CONSTIPATION [None]
  - CONTUSION [None]
  - DRUG HYPERSENSITIVITY [None]
  - DRUG INEFFECTIVE [None]
  - ECZEMA [None]
  - FATIGUE [None]
  - INSOMNIA [None]
  - LEPROSY [None]
  - MEMORY IMPAIRMENT [None]
  - OSTEOARTHRITIS [None]
  - OSTEOPENIA [None]
  - PAIN [None]
  - ROAD TRAFFIC ACCIDENT [None]
  - SARCOIDOSIS [None]
  - SINUSITIS [None]
  - SKIN LACERATION [None]
  - TINNITUS [None]
  - URINARY RETENTION [None]
  - URTICARIA [None]
